FAERS Safety Report 7326365-9 (Version None)
Quarter: 2011Q1

REPORT INFORMATION
  Report Type: 
  Country: None (occurrence: None)
  Receive Date: 20110222
  Receipt Date: 20110211
  Transmission Date: 20110831
  Serious: Yes (Other)
  Sender: FDA-Public Use
  Company Number: 20110079

PATIENT
  Age: 41 Year
  Sex: Female
  Weight: 74.8435 kg

DRUGS (4)
  1. LIDOCAINE [Concomitant]
  2. SODIUM CHLORIDE 0.9% [Concomitant]
  3. SODIUM BICARBONATE [Suspect]
     Dosage: 40 MEG IN SALINE
     Dates: start: 20100521, end: 20100521
  4. EPINEPHRINE [Concomitant]

REACTIONS (4)
  - GRANULOMA [None]
  - OFF LABEL USE [None]
  - ENDOCARDITIS ENTEROCOCCAL [None]
  - ERYTHEMA [None]
